FAERS Safety Report 7459357-X (Version None)
Quarter: 2011Q2

REPORT INFORMATION
  Report Type: 
  Country: None (occurrence: None)
  Receive Date: 20110505
  Receipt Date: 20110422
  Transmission Date: 20111010
  Serious: Yes (Hospitalization, Other)
  Sender: FDA-Public Use
  Company Number: US-PFIZER INC-2010163940

PATIENT
  Sex: Female

DRUGS (2)
  1. VANCOMYCIN HCL [Suspect]
  2. ENBREL [Suspect]
     Indication: PSORIASIS
     Dosage: 50 MG, QWK, 50 MG TWICE WEEKLY DURING FLARES
     Dates: start: 20080401, end: 20101101

REACTIONS (16)
  - JOINT EFFUSION [None]
  - LABORATORY TEST ABNORMAL [None]
  - RED MAN SYNDROME [None]
  - ARTHRITIS [None]
  - FATIGUE [None]
  - FIBROMYALGIA [None]
  - PSORIASIS [None]
  - OSTEOARTHRITIS [None]
  - WEIGHT BEARING DIFFICULTY [None]
  - ARTHRALGIA [None]
  - ALOPECIA [None]
  - DRUG HYPERSENSITIVITY [None]
  - INJECTION SITE PAIN [None]
  - SEPSIS [None]
  - STREPTOCOCCAL INFECTION [None]
  - SKIN HAEMORRHAGE [None]
